FAERS Safety Report 26045443 (Version 1)
Quarter: 2025Q4

REPORT INFORMATION
  Report Type: Report from Study
  Country: ZA (occurrence: ZA)
  Receive Date: 20251114
  Receipt Date: 20251114
  Transmission Date: 20260117
  Serious: Yes (Hospitalization, Other)
  Sender: ALEXION PHARMACEUTICALS
  Company Number: ZA-AstraZeneca-CH-00990110A

PATIENT
  Age: 70 Year
  Sex: Male

DRUGS (7)
  1. BUDESONIDE\FORMOTEROL [Suspect]
     Active Substance: BUDESONIDE\FORMOTEROL
     Indication: Asthma
     Dosage: 120 ?G/INHALATION
  2. Allermine [Concomitant]
  3. Ticarda [Concomitant]
     Indication: Hypertension
  4. Ficali [Concomitant]
     Indication: Depression
  5. CELECOXIB [Concomitant]
     Active Substance: CELECOXIB
     Indication: Pain
  6. PREGABALIN [Concomitant]
     Active Substance: PREGABALIN
     Indication: Epilepsy
  7. OMEPRAZOLE [Concomitant]
     Active Substance: OMEPRAZOLE
     Indication: Gastrooesophageal reflux disease

REACTIONS (1)
  - Diabetes mellitus [Unknown]
